FAERS Safety Report 20193680 (Version 1)
Quarter: 2021Q4

REPORT INFORMATION
  Report Type: Spontaneous
  Country: US (occurrence: US)
  Receive Date: 20211216
  Receipt Date: 20211216
  Transmission Date: 20220303
  Serious: No
  Sender: FDA-Public Use
  Company Number: MIQ-03082021-821(V1)

PATIENT
  Sex: Female

DRUGS (1)
  1. ZOHYDRO [Suspect]
     Active Substance: HYDROCODONE BITARTRATE
     Indication: Pain
     Dosage: 40 MG, BID
     Route: 048

REACTIONS (2)
  - Insomnia [Unknown]
  - Product dose omission issue [Unknown]
